FAERS Safety Report 5772390-9 (Version None)
Quarter: 2008Q2

REPORT INFORMATION
  Report Type: 
  Country: None (occurrence: None)
  Receive Date: 20080613
  Receipt Date: 20080602
  Transmission Date: 20081010
  Serious: Yes (Death)
  Sender: FDA-Public Use
  Company Number: TR-ELI_LILLY_AND_COMPANY-TR200806000375

PATIENT
  Sex: Male

DRUGS (2)
  1. HUMULIN N [Suspect]
     Indication: DIABETES MELLITUS
     Dosage: 10 U/MORNING AND 6 U/EVENING
     Route: 058
     Dates: start: 20080101
  2. HUMULIN N [Suspect]
     Dosage: 6 U, EACH EVENING
     Route: 058

REACTIONS (1)
  - RENAL CANCER [None]
